FAERS Safety Report 5629366-1 (Version None)
Quarter: 2008Q1

REPORT INFORMATION
  Report Type: 
  Country: None (occurrence: None)
  Receive Date: 20080218
  Receipt Date: 20080208
  Transmission Date: 20080703
  Serious: No
  Sender: FDA-Public Use
  Company Number: DE-ELI_LILLY_AND_COMPANY-DE200802002006

PATIENT
  Age: 84 Year
  Sex: Female

DRUGS (25)
  1. OLANZAPINE [Suspect]
     Indication: DEMENTIA
     Dosage: 2.5 MG, DAILY (1/D)
     Route: 048
     Dates: start: 20071016, end: 20071016
  2. OLANZAPINE [Suspect]
     Dosage: 5 MG, DAILY (1/D)
     Route: 048
     Dates: start: 20071017, end: 20071023
  3. OLANZAPINE [Suspect]
     Dosage: 10 MG, DAILY (1/D)
     Route: 048
     Dates: start: 20071024, end: 20071031
  4. OLANZAPINE [Suspect]
     Dosage: 15 MG, DAILY (1/D)
     Route: 048
     Dates: start: 20071101, end: 20071108
  5. OLANZAPINE [Suspect]
     Dosage: 17.5 MG, DAILY (1/D)
     Route: 048
     Dates: start: 20071109, end: 20071113
  6. OLANZAPINE [Suspect]
     Dosage: 15 MG, DAILY (1/D)
     Route: 048
     Dates: start: 20071114, end: 20071117
  7. OLANZAPINE [Suspect]
     Dosage: 17.5 MG, DAILY (1/D)
     Route: 048
     Dates: start: 20071118, end: 20071119
  8. OLANZAPINE [Suspect]
     Dosage: 15 MG, DAILY (1/D)
     Route: 048
     Dates: start: 20071120, end: 20071120
  9. OLANZAPINE [Suspect]
     Dosage: 12.5 MG, DAILY (1/D)
     Route: 048
     Dates: start: 20071121, end: 20071122
  10. OLANZAPINE [Suspect]
     Dosage: 10 MG, DAILY (1/D)
     Route: 048
     Dates: start: 20071123, end: 20071125
  11. EXELON [Concomitant]
     Dosage: 4.6 MG, UNK
     Dates: start: 20071021
  12. RISPERDAL [Concomitant]
     Dosage: 0.5 MG, DAILY (1/D)
     Route: 048
     Dates: start: 20071113, end: 20071113
  13. RISPERDAL [Concomitant]
     Dosage: 1.5 MG, DAILY (1/D)
     Route: 048
     Dates: start: 20071114, end: 20071115
  14. RISPERDAL [Concomitant]
     Dosage: 2 MG, DAILY (1/D)
     Route: 048
     Dates: start: 20071116, end: 20071118
  15. RISPERDAL [Concomitant]
     Dosage: 3 MG, DAILY (1/D)
     Route: 048
     Dates: start: 20071119, end: 20071120
  16. RISPERDAL [Concomitant]
     Dosage: 3.5 MG, DAILY (1/D)
     Route: 048
     Dates: start: 20071121
  17. MELPERON [Concomitant]
     Indication: SEDATION
     Dosage: 25 MG, DAILY (1/D)
     Route: 048
     Dates: start: 20071121, end: 20071124
  18. TAVOR [Concomitant]
     Dosage: 0.5 MG, DAILY (1/D)
     Route: 048
     Dates: start: 20071010, end: 20071010
  19. TAVOR [Concomitant]
     Dosage: 1 MG, DAILY (1/D)
     Route: 048
     Dates: start: 20071012, end: 20071012
  20. TAVOR [Concomitant]
     Dosage: 0.5 MG, DAILY (1/D)
     Dates: start: 20071013
  21. TRIAMTEREN [Concomitant]
     Dosage: 12.5 MG, DAILY (1/D)
     Route: 048
     Dates: start: 20071013, end: 20071020
  22. TRIAMTEREN [Concomitant]
     Dosage: 25 MG, DAILY (1/D)
     Route: 048
     Dates: start: 20071121
  23. AESCULUS HIPPOCASTANUM EXTRACT [Concomitant]
     Dosage: 50 MG, DAILY (1/D)
     Route: 048
  24. DEXIUM [Concomitant]
     Dosage: 500 MG, DAILY (1/D)
     Route: 048
  25. OVESTIN [Concomitant]
     Dosage: 1 MG, DAILY (1/D)
     Route: 048

REACTIONS (9)
  - BLOOD PRESSURE DECREASED [None]
  - CONTUSION [None]
  - DRUG INTERACTION [None]
  - FACIAL BONES FRACTURE [None]
  - FALL [None]
  - GAIT DISTURBANCE [None]
  - HAEMATOMA [None]
  - LACERATION [None]
  - SEDATION [None]
